FAERS Safety Report 25607185 (Version 1)
Quarter: 2025Q3

REPORT INFORMATION
  Report Type: Spontaneous
  Country: US (occurrence: None)
  Receive Date: 20250725
  Receipt Date: 20250725
  Transmission Date: 20251020
  Serious: Yes (Life-Threatening, Disabling, Other)
  Sender: FDA-CTU
  Company Number: None

PATIENT
  Age: 49 Year
  Sex: Female
  Weight: 67.95 kg

DRUGS (2)
  1. HYRIMOZ [Suspect]
     Active Substance: ADALIMUMAB-ADAZ
     Indication: Rheumatoid arthritis
     Dosage: OTHER QUANTITY : 2 INJECTION(S);?OTHER FREQUENCY : ONCE WEEK;?
     Route: 058
  2. HYRIMOZ [Suspect]
     Active Substance: ADALIMUMAB-ADAZ
     Indication: Systemic lupus erythematosus

REACTIONS (2)
  - Pneumonia [None]
  - Myocardial ischaemia [None]

NARRATIVE: CASE EVENT DATE: 20250705
